FAERS Safety Report 15773437 (Version 1)
Quarter: 2018Q4

REPORT INFORMATION
  Report Type: Spontaneous
  Country: US (occurrence: US)
  Receive Date: 20181228
  Receipt Date: 20181228
  Transmission Date: 20190205
  Serious: Yes (Other)
  Sender: FDA-Public Use
  Company Number: US-CONCORDIA LABORATORIES INC.-2018-CLI-000029

PATIENT
  Sex: Male

DRUGS (2)
  1. PHOTOFRIN [Suspect]
     Active Substance: PORFIMER SODIUM
     Dosage: UNK
     Dates: start: 20181214
  2. PHOTOFRIN [Suspect]
     Active Substance: PORFIMER SODIUM
     Indication: PRODUCT USED FOR UNKNOWN INDICATION
     Dosage: UNK
     Dates: start: 20181212

REACTIONS (4)
  - Angioedema [Unknown]
  - Swollen tongue [Unknown]
  - Dyspnoea [Unknown]
  - Lip swelling [Unknown]

NARRATIVE: CASE EVENT DATE: 201812
